FAERS Safety Report 6160513-1 (Version None)
Quarter: 2009Q2

REPORT INFORMATION
  Report Type: 
  Country: None (occurrence: None)
  Receive Date: 20090416
  Receipt Date: 20090331
  Transmission Date: 20091009
  Serious: Yes (Life-Threatening, Hospitalization, Other)
  Sender: FDA-Public Use
  Company Number: 2008AP001752

PATIENT
  Age: 47 Year
  Sex: Female
  Weight: 54.4316 kg

DRUGS (4)
  1. ZONISAMIDE [Suspect]
     Indication: CONVULSION
     Dosage: 100 MG; QID; PO
     Route: 048
     Dates: start: 20080201, end: 20080301
  2. ZONISAMIDE [Concomitant]
  3. TOPIRAMATE [Concomitant]
  4. LEVETIRACETAM [Concomitant]

REACTIONS (11)
  - BLOOD CALCIUM DECREASED [None]
  - BLOOD CHLORIDE INCREASED [None]
  - BLOOD GLUCOSE INCREASED [None]
  - BLOOD PHOSPHORUS DECREASED [None]
  - BLOOD POTASSIUM DECREASED [None]
  - BLOOD PROLACTIN INCREASED [None]
  - CONDITION AGGRAVATED [None]
  - CONVULSION [None]
  - DRUG INEFFECTIVE [None]
  - PCO2 DECREASED [None]
  - RESPIRATORY ARREST [None]
